FAERS Safety Report 22197444 (Version 3)
Quarter: 2023Q2

REPORT INFORMATION
  Report Type: Spontaneous
  Country: US (occurrence: US)
  Receive Date: 20230411
  Receipt Date: 20230426
  Transmission Date: 20230722
  Serious: Yes (Life-Threatening, Other)
  Sender: FDA-Public Use
  Company Number: US-PFIZER INC-PV202300062719

PATIENT
  Age: 67 Year
  Sex: Female

DRUGS (7)
  1. LEVETIRACETAM [Suspect]
     Active Substance: LEVETIRACETAM
     Indication: Seizure prophylaxis
     Dosage: 1000 MG
  2. PHENOBARBITAL [Suspect]
     Active Substance: PHENOBARBITAL
     Indication: Seizure prophylaxis
     Dosage: 130 MG
  3. FENTANYL [Concomitant]
     Active Substance: FENTANYL
     Dosage: 50 MCG
  4. FENTANYL [Concomitant]
     Active Substance: FENTANYL
     Dosage: 25 MCG
  5. LIDOCAINE [Concomitant]
     Active Substance: LIDOCAINE
     Dosage: 70 MG
  6. PROPOFOL [Concomitant]
     Active Substance: PROPOFOL
     Dosage: 150 MG
  7. ROCURONIUM [Concomitant]
     Active Substance: ROCURONIUM BROMIDE
     Dosage: 50 MG

REACTIONS (4)
  - Myocardial ischaemia [Unknown]
  - Cardiac dysfunction [Unknown]
  - Anaphylactic reaction [Unknown]
  - Stress cardiomyopathy [Recovered/Resolved]
